FAERS Safety Report 10149038 (Version 1)
Quarter: 2014Q2

REPORT INFORMATION
  Report Type: Spontaneous
  Country: US (occurrence: US)
  Receive Date: 20140502
  Receipt Date: 20140502
  Transmission Date: 20141212
  Serious: No
  Sender: FDA-Public Use
  Company Number: US-JNJFOC-20140413955

PATIENT
  Age: 41 Year
  Sex: Female
  Weight: 52.16 kg

DRUGS (1)
  1. DURAGESIC [Suspect]
     Indication: PAIN
     Dosage: 100 UG/HR + 50 UG/HR
     Route: 062
     Dates: start: 2011

REACTIONS (4)
  - Product adhesion issue [Unknown]
  - Drug dose omission [Unknown]
  - Malaise [Unknown]
  - Withdrawal syndrome [Not Recovered/Not Resolved]
